FAERS Safety Report 6507048-1 (Version None)
Quarter: 2009Q4

REPORT INFORMATION
  Report Type: 
  Country: None (occurrence: None)
  Receive Date: 20091221
  Receipt Date: 20091208
  Transmission Date: 20100525
  Serious: Yes (Hospitalization)
  Sender: FDA-Public Use
  Company Number: PHHY2009DK50492

PATIENT
  Sex: Male
  Weight: 87 kg

DRUGS (15)
  1. GLEEVEC [Suspect]
     Indication: KIDNEY FIBROSIS
     Dosage: 400 MG, UNK
     Dates: start: 20091020, end: 20091105
  2. NEXIUM [Concomitant]
  3. HJERTEMAGNYL [Concomitant]
  4. CARDICOR [Concomitant]
  5. GLUCOSAMINE [Concomitant]
  6. CIPRALEX [Concomitant]
  7. ETALPHA [Concomitant]
  8. MAREVAN [Concomitant]
  9. SODIUM POLYSTYRENE SULFONATE [Concomitant]
  10. IPREN [Concomitant]
     Dosage: UNK
  11. ACETAMINOPHEN [Concomitant]
     Dosage: WHEN NEEDED
  12. KETOGAN [Concomitant]
     Dosage: WHEN NEEDED
  13. GASTRO-TIMELETS [Concomitant]
     Dosage: WHEN NEEDED
  14. LACTULOSE [Concomitant]
     Dosage: WHEN NEEDED
  15. LAXOBERAL [Concomitant]
     Dosage: WHEN NEEDED

REACTIONS (5)
  - CHILLS [None]
  - DIARRHOEA [None]
  - GENERAL PHYSICAL HEALTH DETERIORATION [None]
  - PYREXIA [None]
  - SEPSIS [None]
